FAERS Safety Report 23365714 (Version 1)
Quarter: 2024Q1

REPORT INFORMATION
  Report Type: Spontaneous
  Country: US (occurrence: None)
  Receive Date: 20240103
  Receipt Date: 20240103
  Transmission Date: 20240410
  Serious: Yes (Hospitalization)
  Sender: FDA-Public Use
  Company Number: None

PATIENT
  Age: 65 Year
  Sex: Male

DRUGS (10)
  1. REPATHA [Suspect]
     Active Substance: EVOLOCUMAB
     Indication: Hyperlipidaemia
     Dosage: OTHER FREQUENCY : Q 2 WEEKS.;?
     Route: 058
     Dates: start: 20211230
  2. CARVEDILOL [Concomitant]
     Active Substance: CARVEDILOL
  3. LISINOPRIL [Concomitant]
     Active Substance: LISINOPRIL
  4. ISOSORBIDE MONONITRATE [Concomitant]
     Active Substance: ISOSORBIDE MONONITRATE
  5. PLAVIX [Concomitant]
     Active Substance: CLOPIDOGREL BISULFATE
  6. ASPIRIN [Concomitant]
     Active Substance: ASPIRIN
  7. Advair Diskuss [Concomitant]
  8. RANOLAZINE [Concomitant]
     Active Substance: RANOLAZINE
  9. JARDIANCE [Concomitant]
     Active Substance: EMPAGLIFLOZIN
  10. DEVICE [Suspect]
     Active Substance: DEVICE

REACTIONS (1)
  - Stent placement [None]

NARRATIVE: CASE EVENT DATE: 20231201
